FAERS Safety Report 19821014 (Version 1)
Quarter: 2021Q3

REPORT INFORMATION
  Report Type: Spontaneous
  Country: US (occurrence: US)
  Receive Date: 20210910
  Receipt Date: 20210910
  Transmission Date: 20211014
  Serious: No
  Sender: FDA-Public Use
  Company Number: None

PATIENT
  Age: 56 Year
  Sex: Female

DRUGS (2)
  1. ?ALBUTEROL SULFATE INHALATION SOL, 2.5 MG NEPHRON PHARMACEUTICALS CORP [Suspect]
     Active Substance: ALBUTEROL SULFATE
     Indication: RHEUMATOID ARTHRITIS
  2. ENBREL [Suspect]
     Active Substance: ETANERCEPT
     Indication: RHEUMATOID ARTHRITIS
     Route: 058
     Dates: start: 202006

REACTIONS (2)
  - Nasopharyngitis [None]
  - Therapy interrupted [None]
